FAERS Safety Report 5115809-9 (Version None)
Quarter: 2006Q3

REPORT INFORMATION
  Report Type: 
  Country: None (occurrence: None)
  Receive Date: 20060927
  Receipt Date: 20060918
  Transmission Date: 20061208
  Serious: Yes (Other)
  Sender: FDA-Public Use
  Company Number: 2006AC01703

PATIENT
  Age: 68 Year
  Sex: Male

DRUGS (9)
  1. LISINOPRIL [Suspect]
     Route: 048
  2. IRBESARTAN [Interacting]
  3. AMLODIPINE [Concomitant]
  4. CYANOCOBALAMIN [Concomitant]
  5. FOLIC ACID [Concomitant]
  6. GEMFIBROZIL [Concomitant]
  7. METOPROLOL [Concomitant]
  8. NITROGLYCERIN [Concomitant]
     Dosage: 0.4 MG/HR
  9. RANITIDINE [Concomitant]

REACTIONS (4)
  - ANGIONEUROTIC OEDEMA [None]
  - DRUG INTERACTION [None]
  - PENILE SWELLING [None]
  - PENIS DISORDER [None]
